FAERS Safety Report 22019948 (Version 1)
Quarter: 2023Q1

REPORT INFORMATION
  Report Type: Spontaneous
  Country: GB (occurrence: GB)
  Receive Date: 20230222
  Receipt Date: 20230222
  Transmission Date: 20230417
  Serious: Yes (Hospitalization)
  Sender: FDA-Public Use
  Company Number: GB-MHRA-MED-202302161204298610-WZPMC

PATIENT
  Age: 53 Year
  Sex: Male

DRUGS (3)
  1. LAMOTRIGINE [Suspect]
     Active Substance: LAMOTRIGINE
     Indication: Bipolar disorder
     Dosage: 25 MILLIGRAM, QD (A DAY)
     Route: 065
     Dates: start: 20230119, end: 20230214
  2. SERTRALINE [Concomitant]
     Active Substance: SERTRALINE HYDROCHLORIDE
     Indication: Bipolar disorder
     Dosage: UNK
     Route: 065
     Dates: start: 20230119
  3. VALPROATE SODIUM [Concomitant]
     Active Substance: VALPROATE SODIUM
     Indication: Bipolar disorder
     Dosage: UNK
     Route: 065

REACTIONS (2)
  - Stevens-Johnson syndrome [Not Recovered/Not Resolved]
  - Medication error [Unknown]

NARRATIVE: CASE EVENT DATE: 20230214
